FAERS Safety Report 20113990 (Version 1)
Quarter: 2021Q4

REPORT INFORMATION
  Report Type: Spontaneous
  Country: US (occurrence: US)
  Receive Date: 20211125
  Receipt Date: 20211125
  Transmission Date: 20220303
  Serious: Yes (Other)
  Sender: FDA-Public Use
  Company Number: US-GLAXOSMITHKLINE-US2021GSK243341

PATIENT
  Sex: Male

DRUGS (21)
  1. RANITIDINE [Suspect]
     Active Substance: RANITIDINE
     Indication: Gastrooesophageal reflux disease
     Dosage: 300 MG, QD
     Route: 065
     Dates: start: 200801, end: 201111
  2. RANITIDINE [Suspect]
     Active Substance: RANITIDINE
     Dosage: 300 MG, BID
     Route: 065
     Dates: start: 200801, end: 201111
  3. RANITIDINE [Suspect]
     Active Substance: RANITIDINE
     Dosage: TWO TIMES PER WEEK
     Route: 065
  4. RANITIDINE HYDROCHLORIDE [Suspect]
     Active Substance: RANITIDINE HYDROCHLORIDE
     Indication: Gastrooesophageal reflux disease
     Dosage: 300 MG, QD
     Route: 065
     Dates: start: 200801, end: 201101
  5. RANITIDINE HYDROCHLORIDE [Suspect]
     Active Substance: RANITIDINE HYDROCHLORIDE
     Dosage: 300 MG, BID
     Route: 065
     Dates: start: 200801, end: 201101
  6. RANITIDINE HYDROCHLORIDE [Suspect]
     Active Substance: RANITIDINE HYDROCHLORIDE
     Dosage: TWO TIMES PER WEEK
     Route: 065
  7. ZANTAC [Suspect]
     Active Substance: RANITIDINE HYDROCHLORIDE
     Indication: Gastrooesophageal reflux disease
     Dosage: 300 MG, QD
     Route: 065
     Dates: start: 200801, end: 201101
  8. ZANTAC [Suspect]
     Active Substance: RANITIDINE HYDROCHLORIDE
     Dosage: 300 MG, BID
     Route: 065
     Dates: start: 200801, end: 201101
  9. ZANTAC [Suspect]
     Active Substance: RANITIDINE HYDROCHLORIDE
     Dosage: TWO TIMES PER WEEK
     Route: 065
  10. ZANTAC [Suspect]
     Active Substance: RANITIDINE HYDROCHLORIDE
     Indication: Gastrooesophageal reflux disease
     Dosage: 300 MG, QD
     Route: 065
     Dates: start: 200801, end: 201111
  11. ZANTAC [Suspect]
     Active Substance: RANITIDINE HYDROCHLORIDE
     Dosage: 300 MG, BID
     Route: 065
     Dates: start: 200801, end: 201111
  12. ZANTAC [Suspect]
     Active Substance: RANITIDINE HYDROCHLORIDE
     Dosage: TWO TIMES PER WEEK
     Route: 065
  13. ZANTAC [Suspect]
     Active Substance: RANITIDINE HYDROCHLORIDE
     Indication: Gastrooesophageal reflux disease
     Dosage: 300 MG, QD
     Route: 065
     Dates: start: 200801, end: 201111
  14. ZANTAC [Suspect]
     Active Substance: RANITIDINE HYDROCHLORIDE
     Dosage: 300 MG, BID
     Route: 065
     Dates: start: 200801, end: 201111
  15. ZANTAC [Suspect]
     Active Substance: RANITIDINE HYDROCHLORIDE
     Dosage: TWO TIMES PER WEEK
     Route: 065
  16. RANITIDINE [Suspect]
     Active Substance: RANITIDINE
     Indication: Gastrooesophageal reflux disease
     Dosage: 300 MG, BID
     Route: 065
     Dates: start: 200801, end: 201111
  17. RANITIDINE [Suspect]
     Active Substance: RANITIDINE
     Dosage: 300 MG, QD
     Route: 065
     Dates: start: 200801, end: 201111
  18. RANITIDINE [Suspect]
     Active Substance: RANITIDINE
     Dosage: TWO TIMES PER WEEK
     Route: 065
  19. RANITIDINE [Suspect]
     Active Substance: RANITIDINE
     Indication: Gastrooesophageal reflux disease
     Dosage: 300 MG, QD
     Route: 065
     Dates: start: 200801, end: 201111
  20. RANITIDINE [Suspect]
     Active Substance: RANITIDINE
     Dosage: 300 MG, BID
     Route: 065
     Dates: start: 200801, end: 201111
  21. RANITIDINE [Suspect]
     Active Substance: RANITIDINE
     Dosage: TWO TIMES PER WEEK
     Route: 065

REACTIONS (1)
  - Prostate cancer [Unknown]
